FAERS Safety Report 20317771 (Version 1)
Quarter: 2022Q1

REPORT INFORMATION
  Report Type: Spontaneous
  Country: US (occurrence: US)
  Receive Date: 20220110
  Receipt Date: 20220110
  Transmission Date: 20220423
  Serious: Yes (Other)
  Sender: FDA-Public Use
  Company Number: US-AMNEAL PHARMACEUTICALS-2021-AMRX-05213

PATIENT

DRUGS (1)
  1. TRIAMCINOLONE ACETONIDE [Suspect]
     Active Substance: TRIAMCINOLONE ACETONIDE
     Indication: Dermal cyst
     Dosage: UNK
     Route: 065
     Dates: start: 20211123

REACTIONS (4)
  - Morganella infection [Unknown]
  - Infection [Unknown]
  - Abscess [Unknown]
  - Product contamination [Unknown]
